FAERS Safety Report 19372697 (Version 1)
Quarter: 2021Q2

REPORT INFORMATION
  Report Type: Spontaneous
  Country: US (occurrence: US)
  Receive Date: 20210603
  Receipt Date: 20210603
  Transmission Date: 20210717
  Serious: Yes (Other)
  Sender: FDA-Public Use
  Company Number: None

PATIENT
  Age: 63 Year
  Sex: Female
  Weight: 45 kg

DRUGS (2)
  1. CHLORHEXIDINE GLUCONATE 0.12% [Suspect]
     Active Substance: CHLORHEXIDINE GLUCONATE
     Indication: DENTAL OPERATION
     Dosage: ?          QUANTITY:10 ML;OTHER ROUTE:ORAL RINSE?
     Dates: start: 20210524, end: 20210526
  2. CALCIUM SUPPLEMENTS [Concomitant]
     Active Substance: CALCIUM

REACTIONS (5)
  - Hypersensitivity [None]
  - Dysphagia [None]
  - Dyspepsia [None]
  - Diarrhoea [None]
  - Throat tightness [None]

NARRATIVE: CASE EVENT DATE: 20210526
